FAERS Safety Report 11470241 (Version 2)
Quarter: 2015Q3

REPORT INFORMATION
  Report Type: Spontaneous
  Country: US (occurrence: US)
  Receive Date: 20150903
  Receipt Date: 20150903
  Transmission Date: 20151125
  Serious: No
  Sender: FDA-Public Use
  Company Number: US-ELI_LILLY_AND_COMPANY-US201111006405

PATIENT
  Age: 50 Year
  Sex: Male

DRUGS (1)
  1. CYMBALTA [Suspect]
     Active Substance: DULOXETINE HYDROCHLORIDE
     Dosage: 60 MG, UNK
     Dates: end: 20111117

REACTIONS (3)
  - Blood catecholamines increased [Not Recovered/Not Resolved]
  - Norepinephrine increased [Not Recovered/Not Resolved]
  - Serum serotonin increased [Not Recovered/Not Resolved]

NARRATIVE: CASE EVENT DATE: 201107
